FAERS Safety Report 7291646-4 (Version None)
Quarter: 2011Q1

REPORT INFORMATION
  Report Type: 
  Country: None (occurrence: None)
  Receive Date: 20110209
  Receipt Date: 20110209
  Transmission Date: 20110831
  Serious: Yes (Other)
  Sender: FDA-Public Use
  Company Number: None

PATIENT
  Age: 3 Year
  Sex: Female
  Weight: 14.0615 kg

DRUGS (1)
  1. CEFDINIR [Suspect]
     Dosage: 5ML DAILYFOR 10 DAYS PO
     Route: 048

REACTIONS (4)
  - ABASIA [None]
  - URTICARIA [None]
  - SERUM SICKNESS [None]
  - PAIN [None]
